FAERS Safety Report 19240180 (Version 3)
Quarter: 2021Q3

REPORT INFORMATION
  Report Type: Spontaneous
  Country: CA (occurrence: CA)
  Receive Date: 20210510
  Receipt Date: 20210826
  Transmission Date: 20211014
  Serious: Yes (Other)
  Sender: FDA-Public Use
  Company Number: CA-BAUSCH-BL-2021-015038

PATIENT
  Age: 47 Year
  Sex: Female

DRUGS (47)
  1. LORAZEPAM. [Interacting]
     Active Substance: LORAZEPAM
     Dosage: 3 DOSES OF LORAZEPAM 2 MG ON DAY 6
     Route: 065
  2. LORAZEPAM. [Interacting]
     Active Substance: LORAZEPAM
     Indication: DRUG WITHDRAWAL SYNDROME
     Route: 030
  3. METHADONE [Interacting]
     Active Substance: METHADONE HYDROCHLORIDE
     Dosage: RESTARTED ON DAY 24
     Route: 065
  4. METHADONE [Interacting]
     Active Substance: METHADONE HYDROCHLORIDE
     Dosage: DAY 10
     Route: 048
  5. GABAPENTIN. [Interacting]
     Active Substance: GABAPENTIN
     Indication: PAIN
     Route: 048
  6. GABAPENTIN. [Interacting]
     Active Substance: GABAPENTIN
     Indication: SCOLIOSIS
     Route: 065
  7. FLUOXETINE [Concomitant]
     Active Substance: FLUOXETINE HYDROCHLORIDE
     Dosage: DAY 5 OF HOSPITALIZATION
  8. NAPROXEN. [Concomitant]
     Active Substance: NAPROXEN
     Indication: PAIN
     Dosage: AS NEEDED
     Route: 048
  9. LORAZEPAM. [Interacting]
     Active Substance: LORAZEPAM
     Indication: DRUG WITHDRAWAL SYNDROME
     Dosage: ON DAY 3 OF HOSPITALIZATION
     Route: 065
  10. LORAZEPAM. [Interacting]
     Active Substance: LORAZEPAM
     Dosage: ON DAY 7
     Route: 065
  11. METHADONE [Interacting]
     Active Substance: METHADONE HYDROCHLORIDE
     Route: 065
  12. DIVALPROEX [Interacting]
     Active Substance: DIVALPROEX SODIUM
     Indication: AFFECTIVE DISORDER
     Dosage: 250 MG IN THE MORNING
     Route: 048
  13. DIVALPROEX [Interacting]
     Active Substance: DIVALPROEX SODIUM
     Route: 065
  14. CYCLOBENZAPRINE. [Interacting]
     Active Substance: CYCLOBENZAPRINE
     Dosage: REINITIATED ON DAY 23
     Route: 065
  15. ESTRADIOL. [Concomitant]
     Active Substance: ESTRADIOL
     Indication: ENDOMETRIOSIS
     Route: 048
  16. ATENOLOL. [Concomitant]
     Active Substance: ATENOLOL
     Indication: HYPERTENSION
     Route: 048
  17. METHADONE [Interacting]
     Active Substance: METHADONE HYDROCHLORIDE
     Route: 048
  18. METHADONE [Interacting]
     Active Substance: METHADONE HYDROCHLORIDE
     Dosage: ON DAY 9
     Route: 065
  19. METHADONE [Interacting]
     Active Substance: METHADONE HYDROCHLORIDE
     Dosage: ON DAY 10
     Route: 065
  20. DIVALPROEX [Interacting]
     Active Substance: DIVALPROEX SODIUM
     Dosage: AT NIGHT
     Route: 048
  21. FLUOXETINE [Concomitant]
     Active Substance: FLUOXETINE HYDROCHLORIDE
     Indication: MAJOR DEPRESSION
     Route: 048
  22. FLUOXETINE [Concomitant]
     Active Substance: FLUOXETINE HYDROCHLORIDE
  23. QUETIAPINE. [Concomitant]
     Active Substance: QUETIAPINE
     Indication: AFFECTIVE DISORDER
     Dosage: EXTENDED?RELEASE AT BEDTIME
     Route: 048
  24. DOXEPIN [Concomitant]
     Active Substance: DOXEPIN
     Dosage: FROM DAY 5 TO DAY 7 OF HOSPITALIZATION
     Route: 065
  25. DOXEPIN [Concomitant]
     Active Substance: DOXEPIN
     Dosage: DAY 8 TO DAY 10
     Route: 065
  26. NAPROXEN. [Concomitant]
     Active Substance: NAPROXEN
     Indication: SCOLIOSIS
  27. TIOTROPIUM [Concomitant]
     Active Substance: TIOTROPIUM
     Indication: CHRONIC OBSTRUCTIVE PULMONARY DISEASE
     Route: 055
  28. LORAZEPAM. [Interacting]
     Active Substance: LORAZEPAM
     Dosage: ON DAY 9
     Route: 065
  29. METHADONE [Interacting]
     Active Substance: METHADONE HYDROCHLORIDE
     Indication: DRUG USE DISORDER
     Route: 048
  30. METHADONE [Interacting]
     Active Substance: METHADONE HYDROCHLORIDE
     Dosage: ON DAY 11
     Route: 065
  31. DIVALPROEX [Interacting]
     Active Substance: DIVALPROEX SODIUM
     Dosage: IN THE MORNING
     Route: 048
  32. QUETIAPINE. [Concomitant]
     Active Substance: QUETIAPINE
     Dosage: 25 TO 50 MG IMMEDIATE?RELEASE 4 TIMES DAILY AS NEEDED
  33. FUROSEMIDE. [Concomitant]
     Active Substance: FUROSEMIDE
     Indication: OEDEMA PERIPHERAL
     Dosage: AS NEEDED
     Route: 048
  34. SALBUTAMOL [Concomitant]
     Active Substance: ALBUTEROL
     Indication: CHRONIC OBSTRUCTIVE PULMONARY DISEASE
     Dosage: AS NEEDED
     Route: 055
  35. LORAZEPAM. [Suspect]
     Active Substance: LORAZEPAM
     Indication: AFFECTIVE DISORDER
     Dosage: 1 TO 2 MG PO 4 TIMES DAILY AS NEEDED
     Route: 048
  36. LORAZEPAM. [Interacting]
     Active Substance: LORAZEPAM
     Dosage: ON DAY 10
     Route: 048
  37. FLUOXETINE [Concomitant]
     Active Substance: FLUOXETINE HYDROCHLORIDE
     Dosage: ON DAY 6 OF HOSPITALIZATION
  38. DOXEPIN [Concomitant]
     Active Substance: DOXEPIN
     Indication: MAJOR DEPRESSION
     Route: 048
  39. LORAZEPAM. [Interacting]
     Active Substance: LORAZEPAM
     Indication: ANXIETY
     Dosage: ON DAY 4 AND DAY 5 OF HOSPITALIZATION
     Route: 065
  40. LORAZEPAM. [Interacting]
     Active Substance: LORAZEPAM
     Dosage: DOSES BETWEEN 1 AND 7 MG/D UNTIL DAY 23
     Route: 065
  41. DIVALPROEX [Interacting]
     Active Substance: DIVALPROEX SODIUM
     Indication: MANIA
     Dosage: 500 MG AT BEDTIME
     Route: 048
  42. CYCLOBENZAPRINE. [Interacting]
     Active Substance: CYCLOBENZAPRINE
     Indication: PAIN
     Route: 048
  43. CYCLOBENZAPRINE. [Interacting]
     Active Substance: CYCLOBENZAPRINE
     Dosage: AS NEEDED
     Route: 065
  44. LORAZEPAM. [Interacting]
     Active Substance: LORAZEPAM
     Dosage: ON DAY 8
     Route: 065
  45. METHADONE [Interacting]
     Active Substance: METHADONE HYDROCHLORIDE
     Dosage: DAY 8
     Route: 048
  46. CYCLOBENZAPRINE. [Interacting]
     Active Substance: CYCLOBENZAPRINE
     Indication: SCOLIOSIS
     Dosage: RESTARTED ON DAY 10
     Route: 048
  47. RISPERIDONE. [Concomitant]
     Active Substance: RISPERIDONE
     Indication: AFFECTIVE DISORDER
     Route: 048

REACTIONS (4)
  - Respiratory depression [Recovering/Resolving]
  - Toxicity to various agents [Recovering/Resolving]
  - Drug interaction [Unknown]
  - Depressed level of consciousness [Recovering/Resolving]
